FAERS Safety Report 4741102-X (Version None)
Quarter: 2005Q3

REPORT INFORMATION
  Report Type: 
  Country: None (occurrence: None)
  Receive Date: 20050808
  Receipt Date: 20050722
  Transmission Date: 20060218
  Serious: Yes (Hospitalization, Other)
  Sender: FDA-Public Use
  Company Number: US_0507120439

PATIENT
  Age: 46 Year
  Sex: Female
  Weight: 86 kg

DRUGS (7)
  1. ZYPREXA [Suspect]
     Indication: BIPOLAR DISORDER
     Dosage: 5 MG/2 DAY
     Dates: start: 20001027, end: 20010901
  2. PROZAC [Concomitant]
  3. NEURONTIN [Concomitant]
  4. REMERON [Concomitant]
  5. KLONOPIN [Concomitant]
  6. CIMETIDINE [Concomitant]
  7. PEPCID [Concomitant]

REACTIONS (20)
  - ABDOMINAL PAIN [None]
  - ALANINE AMINOTRANSFERASE INCREASED [None]
  - ASPARTATE AMINOTRANSFERASE INCREASED [None]
  - BLOOD ALKALINE PHOSPHATASE INCREASED [None]
  - BLOOD GLUCOSE INCREASED [None]
  - CONFUSIONAL STATE [None]
  - DECREASED APPETITE [None]
  - DEHYDRATION [None]
  - DIABETIC COMA [None]
  - DIABETIC KETOACIDOSIS [None]
  - DYSLIPIDAEMIA [None]
  - ELECTROLYTE IMBALANCE [None]
  - GASTRIC BYPASS [None]
  - HEPATIC STEATOSIS [None]
  - METABOLIC ENCEPHALOPATHY [None]
  - MYOCARDIAL ISCHAEMIA [None]
  - OBESITY [None]
  - PANCREATITIS [None]
  - POLYURIA [None]
  - THIRST [None]
